FAERS Safety Report 18650588 (Version 3)
Quarter: 2021Q1

REPORT INFORMATION
  Report Type: Report from Study
  Country: None (occurrence: US)
  Receive Date: 20201223
  Receipt Date: 20210117
  Transmission Date: 20210419
  Serious: Yes (Hospitalization, Other)
  Sender: FDA-Public Use
  Company Number: US-ABBVIE-20K-163-3651139-00

PATIENT
  Age: 68 Year
  Sex: Female

DRUGS (2)
  1. HUMIRA [Suspect]
     Active Substance: ADALIMUMAB
     Route: 058
     Dates: start: 202007
  2. HUMIRA [Suspect]
     Active Substance: ADALIMUMAB
     Indication: COLITIS ULCERATIVE
     Route: 058
     Dates: end: 2020

REACTIONS (8)
  - Pneumonia [Recovered/Resolved]
  - Pneumonia [Recovered/Resolved]
  - Balance disorder [Not Recovered/Not Resolved]
  - Loss of consciousness [Unknown]
  - Lower limb fracture [Unknown]
  - Road traffic accident [Unknown]
  - Clostridium difficile infection [Unknown]
  - Rib fracture [Unknown]

NARRATIVE: CASE EVENT DATE: 2020
